FAERS Safety Report 11494203 (Version 1)
Quarter: 2015Q3

REPORT INFORMATION
  Report Type: Spontaneous
  Country: US (occurrence: US)
  Receive Date: 20150911
  Receipt Date: 20150911
  Transmission Date: 20151125
  Serious: No
  Sender: FDA-Public Use
  Company Number: US-ROCHE-1021934

PATIENT
  Sex: Male
  Weight: 92.16 kg

DRUGS (9)
  1. RIBAVIRIN. [Suspect]
     Active Substance: RIBAVIRIN
     Dosage: DAILY DIVIDED DOSE
     Route: 048
     Dates: start: 20111004
  2. PEGASYS [Suspect]
     Active Substance: PEGINTERFERON ALFA-2A
     Indication: CHRONIC HEPATITIS C
     Route: 065
     Dates: start: 2009
  3. RIBAVIRIN. [Suspect]
     Active Substance: RIBAVIRIN
     Indication: CHRONIC HEPATITIS C
     Route: 065
     Dates: start: 2009
  4. RIBAVIRIN. [Suspect]
     Active Substance: RIBAVIRIN
     Route: 065
     Dates: start: 2010
  5. TELAPREVIR [Suspect]
     Active Substance: TELAPREVIR
     Route: 065
     Dates: start: 20111004
  6. PEGASYS [Suspect]
     Active Substance: PEGINTERFERON ALFA-2A
     Route: 065
     Dates: start: 2010
  7. TELAPREVIR [Suspect]
     Active Substance: TELAPREVIR
     Route: 065
     Dates: start: 2010
  8. PEGASYS [Suspect]
     Active Substance: PEGINTERFERON ALFA-2A
     Route: 058
     Dates: start: 20111004
  9. TELAPREVIR [Suspect]
     Active Substance: TELAPREVIR
     Indication: CHRONIC HEPATITIS C
     Route: 065
     Dates: start: 2009

REACTIONS (5)
  - Depression [Unknown]
  - Headache [Unknown]
  - Irritability [Unknown]
  - Weight increased [Unknown]
  - Depressed mood [Unknown]
